FAERS Safety Report 25989135 (Version 1)
Quarter: 2025Q4

REPORT INFORMATION
  Report Type: Spontaneous
  Country: CN (occurrence: CN)
  Receive Date: 20251103
  Receipt Date: 20251103
  Transmission Date: 20260118
  Serious: Yes (Other)
  Sender: SANOFI AVENTIS
  Company Number: CN-SA-2025SA320636

PATIENT
  Age: 45 Year
  Sex: Male

DRUGS (2)
  1. OXALIPLATIN [Suspect]
     Active Substance: OXALIPLATIN
     Indication: Colon cancer
     Dosage: 230 MG, QD
     Route: 041
     Dates: start: 20251007, end: 20251013
  2. CAPECITABINE [Concomitant]
     Active Substance: CAPECITABINE
     Indication: Colon cancer
     Dosage: 0.5 G, QD (3 TABLETS IN THE MORNING AND 4 TABLETS IN THE EVENING PO)
     Route: 048
     Dates: start: 20251007, end: 20251013

REACTIONS (2)
  - Abdominal discomfort [Recovering/Resolving]
  - Decreased appetite [Unknown]

NARRATIVE: CASE EVENT DATE: 20251007
